FAERS Safety Report 6653544-6 (Version None)
Quarter: 2010Q1

REPORT INFORMATION
  Report Type: 
  Country: None (occurrence: None)
  Receive Date: 20100326
  Receipt Date: 20100316
  Transmission Date: 20100710
  Serious: Yes (Hospitalization)
  Sender: FDA-Public Use
  Company Number: US-ABBOTT-10P-163-0633008-00

PATIENT
  Sex: Male
  Weight: 131.21 kg

DRUGS (5)
  1. HUMIRA [Suspect]
     Indication: SWEAT GLAND INFECTION
     Route: 058
     Dates: start: 20091005, end: 20100301
  2. DOXYCYCLINE [Concomitant]
     Indication: SWEAT GLAND INFECTION
     Dates: start: 20090401
  3. ADVIL LIQUI-GELS [Concomitant]
     Indication: PAIN
     Dosage: TWICE DAILY AS REQUIRED
     Dates: start: 20091212
  4. ADVIL LIQUI-GELS [Concomitant]
     Indication: ABSCESS
  5. ADVIL LIQUI-GELS [Concomitant]
     Indication: SWEAT GLAND INFECTION

REACTIONS (2)
  - DYSURIA [None]
  - URINARY RETENTION [None]
